FAERS Safety Report 4551343-2 (Version None)
Quarter: 2005Q1

REPORT INFORMATION
  Report Type: 
  Country: None (occurrence: None)
  Receive Date: 20050113
  Receipt Date: 20040219
  Transmission Date: 20050727
  Serious: No
  Sender: FDA-Public Use
  Company Number: US-MERCK-0402USA01503

PATIENT
  Age: 75 Year
  Sex: Female
  Weight: 75 kg

DRUGS (7)
  1. PRINIVIL [Suspect]
     Indication: HYPERTENSION
     Route: 048
  2. PRINIVIL [Suspect]
     Route: 048
  3. PRINIVIL [Suspect]
     Route: 048
  4. PRINIVIL [Suspect]
     Route: 048
  5. ZESTRIL [Concomitant]
     Route: 065
  6. ATENOLOL [Concomitant]
     Route: 065
  7. XANAX [Concomitant]
     Route: 065

REACTIONS (6)
  - ARTHRITIS [None]
  - MEDICATION ERROR [None]
  - MUSCLE STRAIN [None]
  - NASAL DISCOMFORT [None]
  - NASAL OEDEMA [None]
  - OROPHARYNGEAL SWELLING [None]
